FAERS Safety Report 12482839 (Version 1)
Quarter: 2016Q2

REPORT INFORMATION
  Report Type: Spontaneous
  Country: US (occurrence: FI)
  Receive Date: 20160620
  Receipt Date: 20160620
  Transmission Date: 20160815
  Serious: No
  Sender: FDA-Public Use
  Company Number: FI-FRI-1000085427

PATIENT
  Age: 40 Year
  Sex: Female

DRUGS (9)
  1. PEGORION [Concomitant]
     Dates: start: 20160427
  2. SERETIDE [Concomitant]
     Active Substance: FLUTICASONE PROPIONATE\SALMETEROL XINAFOATE
     Dates: start: 20150420
  3. ASENAPINE [Suspect]
     Active Substance: ASENAPINE
     Indication: MOOD ALTERED
     Dosage: 10 MG
     Route: 050
     Dates: start: 20160421, end: 20160513
  4. TENOX [Concomitant]
     Active Substance: TEMAZEPAM
     Dates: start: 20160511
  5. KETIPINOR [Concomitant]
     Active Substance: QUETIAPINE FUMARATE
     Dates: start: 20160502
  6. SEROQUEL [Concomitant]
     Active Substance: QUETIAPINE FUMARATE
     Dates: start: 20160516, end: 20160525
  7. SINGULAIR [Concomitant]
     Active Substance: MONTELUKAST SODIUM
     Dates: start: 20151216
  8. CIRCADIN [Concomitant]
     Active Substance: MELATONIN
     Dates: start: 20151216
  9. CIPRALEX [Concomitant]
     Active Substance: ESCITALOPRAM OXALATE
     Dates: start: 20160420

REACTIONS (1)
  - Oedema [Recovered/Resolved]

NARRATIVE: CASE EVENT DATE: 20160506
